FAERS Safety Report 6153434-1 (Version None)
Quarter: 2009Q2

REPORT INFORMATION
  Report Type: 
  Country: None (occurrence: None)
  Receive Date: 20090409
  Receipt Date: 20090409
  Transmission Date: 20091009
  Serious: Yes (Other)
  Sender: FDA-Public Use
  Company Number: None

PATIENT
  Sex: Female
  Weight: 43.9989 kg

DRUGS (2)
  1. PREVACID [Suspect]
     Indication: GASTROOESOPHAGEAL REFLUX DISEASE
     Dosage: 1 ONE TIME ONLY
     Dates: start: 20090310
  2. PRILOSEC OTC [Concomitant]

REACTIONS (11)
  - ABDOMINAL DISTENSION [None]
  - CHOKING [None]
  - DISCOMFORT [None]
  - DYSPNOEA [None]
  - ERYTHEMA [None]
  - JOINT SWELLING [None]
  - OEDEMA PERIPHERAL [None]
  - POISONING [None]
  - PRURITUS [None]
  - SWELLING [None]
  - SWELLING FACE [None]
